FAERS Safety Report 14288083 (Version 4)
Quarter: 2018Q1

REPORT INFORMATION
  Report Type: Report from Study
  Country: US (occurrence: US)
  Receive Date: 20171215
  Receipt Date: 20180129
  Transmission Date: 20180509
  Serious: Yes (Hospitalization)
  Sender: FDA-Public Use
  Company Number: US-ROCHE-1736379

PATIENT
  Age: 57 Year
  Sex: Male
  Weight: 79.83 kg

DRUGS (32)
  1. COBIMETINIB. [Suspect]
     Active Substance: COBIMETINIB
     Indication: METASTATIC MALIGNANT MELANOMA
     Dosage: MOST RECENT DOSE OF COMBO COBIMETINIB  PRIOR TO THE EVENT ONSET: 31/MAR/2016 (60 MG)?MOST RECENT DOS
     Route: 048
     Dates: start: 20160318
  2. ACETAMINOPHEN. [Concomitant]
     Active Substance: ACETAMINOPHEN
     Indication: PAIN IN EXTREMITY
     Route: 048
  3. ACETAMINOPHEN. [Concomitant]
     Active Substance: ACETAMINOPHEN
     Indication: ARTHRALGIA
  4. IBUPROFEN. [Concomitant]
     Active Substance: IBUPROFEN
     Indication: ARTHRALGIA
     Route: 048
     Dates: start: 20160418
  5. AMBIEN [Concomitant]
     Active Substance: ZOLPIDEM TARTRATE
     Indication: INSOMNIA
     Route: 048
     Dates: start: 20160403
  6. INSULIN [Concomitant]
     Active Substance: INSULIN NOS
     Indication: HYPERGLYCAEMIA
     Dosage: 2 UNITS
     Route: 058
     Dates: start: 20160402, end: 20160404
  7. INSULIN [Concomitant]
     Active Substance: INSULIN NOS
     Dosage: 4 UNITS
     Route: 058
     Dates: start: 20160403, end: 20160403
  8. ATEZOLIZUMAB. [Suspect]
     Active Substance: ATEZOLIZUMAB
     Indication: METASTATIC MALIGNANT MELANOMA
     Dosage: MOST RECENT DOSE PRIOR TO EVENT ONSET: 18/MAR/2016 AND 13/MAY/2016 (800 MG)
     Route: 042
     Dates: start: 20160318
  9. VEMURAFENIB. [Suspect]
     Active Substance: VEMURAFENIB
     Indication: METASTATIC MALIGNANT MELANOMA
     Dosage: MOST RECENT DOSE OF COMBO VEMURAFENIB PRIOR TO THE EVENT ONSET: 31/MAR/2016 (720 MG)?MOST RECENT DOS
     Route: 048
     Dates: start: 20160318
  10. COBIMETINIB. [Suspect]
     Active Substance: COBIMETINIB
     Indication: METASTATIC MALIGNANT MELANOMA
     Dosage: RUN-IN COBIMETINIB
     Route: 048
     Dates: start: 20160219
  11. ACETAMINOPHEN. [Concomitant]
     Active Substance: ACETAMINOPHEN
     Indication: PAIN
  12. ATEZOLIZUMAB. [Suspect]
     Active Substance: ATEZOLIZUMAB
     Dosage: MOST RECENT DOSE PRIOR TO EVENT ONSET: 13/MAY/2016
     Route: 042
     Dates: start: 20160429
  13. ACETAMINOPHEN. [Concomitant]
     Active Substance: ACETAMINOPHEN
     Indication: PYREXIA
  14. IBUPROFEN. [Concomitant]
     Active Substance: IBUPROFEN
     Indication: BACK PAIN
  15. AMBIEN [Concomitant]
     Active Substance: ZOLPIDEM TARTRATE
     Route: 048
     Dates: start: 20160402, end: 20160403
  16. SUBLIMAZE [Concomitant]
     Active Substance: FENTANYL CITRATE
     Indication: SEDATION
     Route: 042
     Dates: start: 20160402, end: 20160402
  17. SUBLIMAZE [Concomitant]
     Active Substance: FENTANYL CITRATE
     Indication: BIOPSY
  18. NYSTATIN. [Concomitant]
     Active Substance: NYSTATIN
     Indication: INFECTION
     Dosage: 500000 UNIT
     Route: 048
     Dates: start: 20160523, end: 20160602
  19. ADVIL [Concomitant]
     Active Substance: IBUPROFEN
     Indication: ARTHRALGIA
     Route: 048
     Dates: start: 20160301
  20. VEMURAFENIB. [Suspect]
     Active Substance: VEMURAFENIB
     Indication: METASTATIC MALIGNANT MELANOMA
     Dosage: RUN-IN VEMURAFENIB
     Route: 048
     Dates: start: 20160219
  21. GABAPENTIN. [Concomitant]
     Active Substance: GABAPENTIN
     Route: 048
     Dates: start: 20160402, end: 20160404
  22. ERYTHROMYCIN. [Concomitant]
     Active Substance: ERYTHROMYCIN
     Indication: EYE INFECTION
     Route: 061
     Dates: start: 20160509, end: 20160513
  23. ACETAMINOPHEN. [Concomitant]
     Active Substance: ACETAMINOPHEN
     Indication: CHILLS
  24. IBUPROFEN. [Concomitant]
     Active Substance: IBUPROFEN
     Indication: HEADACHE
     Route: 048
     Dates: start: 20160301
  25. INSULIN [Concomitant]
     Active Substance: INSULIN NOS
     Dosage: 6 UNITS
     Route: 058
     Dates: start: 20160402, end: 20160402
  26. IMODIUM [Concomitant]
     Active Substance: LOPERAMIDE HYDROCHLORIDE
     Indication: DIARRHOEA
     Dosage: 1 TABLET
     Route: 048
     Dates: start: 20160229, end: 20160314
  27. IBUPROFEN. [Concomitant]
     Active Substance: IBUPROFEN
     Indication: PYREXIA
  28. VERSED [Concomitant]
     Active Substance: MIDAZOLAM HYDROCHLORIDE
     Indication: BIOPSY
     Route: 042
     Dates: start: 20160402, end: 20160402
  29. VERSED [Concomitant]
     Active Substance: MIDAZOLAM HYDROCHLORIDE
     Indication: SEDATION
  30. ZOLPIDEM TARTRATE. [Concomitant]
     Active Substance: ZOLPIDEM TARTRATE
     Indication: INSOMNIA
     Route: 048
     Dates: start: 20160403
  31. GABAPENTIN. [Concomitant]
     Active Substance: GABAPENTIN
     Indication: NEUROPATHY PERIPHERAL
     Route: 048
     Dates: end: 20160402
  32. NYSTATIN. [Concomitant]
     Active Substance: NYSTATIN
     Indication: ORAL CANDIDIASIS

REACTIONS (1)
  - Hepatitis [Recovered/Resolved]

NARRATIVE: CASE EVENT DATE: 20160401
